FAERS Safety Report 11410603 (Version 2)
Quarter: 2015Q4

REPORT INFORMATION
  Report Type: Spontaneous
  Country: US (occurrence: US)
  Receive Date: 20150824
  Receipt Date: 20151008
  Transmission Date: 20160304
  Serious: No
  Sender: FDA-Public Use
  Company Number: US-PFIZER INC-2015276854

PATIENT
  Age: 63 Year
  Sex: Male
  Weight: 88 kg

DRUGS (2)
  1. ADVIL [Suspect]
     Active Substance: IBUPROFEN
     Indication: SINUS HEADACHE
  2. ADVIL [Suspect]
     Active Substance: IBUPROFEN
     Indication: BACK PAIN
     Dosage: 200 MG, AS NEEDED
     Route: 048
     Dates: start: 20150328, end: 201506

REACTIONS (5)
  - Drug ineffective [Recovered/Resolved]
  - Product difficult to swallow [Recovered/Resolved]
  - Product coating issue [Recovered/Resolved]
  - Product adhesion issue [Recovered/Resolved]
  - Dysphagia [Recovered/Resolved]

NARRATIVE: CASE EVENT DATE: 20150328
